FAERS Safety Report 6627965-1 (Version None)
Quarter: 2010Q1

REPORT INFORMATION
  Report Type: 
  Country: None (occurrence: None)
  Receive Date: 20100311
  Receipt Date: 20090421
  Transmission Date: 20100710
  Serious: No
  Sender: FDA-Public Use
  Company Number: A0779858A

PATIENT
  Age: 78 Year
  Sex: Female

DRUGS (2)
  1. NICORETTE [Suspect]
  2. NICODERM CQ [Suspect]

REACTIONS (3)
  - DRUG INEFFECTIVE [None]
  - EMOTIONAL DISORDER [None]
  - INTENTIONAL DRUG MISUSE [None]
